FAERS Safety Report 5076079-3 (Version None)
Quarter: 2006Q3

REPORT INFORMATION
  Report Type: 
  Country: None (occurrence: None)
  Receive Date: 20060804
  Receipt Date: 20060728
  Transmission Date: 20061208
  Serious: No
  Sender: FDA-Public Use
  Company Number: E2020-00310-SPO-JP

PATIENT
  Age: 84 Year
  Sex: Female

DRUGS (6)
  1. ARICEPT [Suspect]
     Indication: DEMENTIA ALZHEIMER'S TYPE
     Dosage: ORAL
     Route: 048
     Dates: start: 20051129
  2. DIOVAN [Concomitant]
  3. FOIPAN (CAMOSTAT MESILAGE) [Concomitant]
  4. NEUQUINON (UBIDECARENONE) [Concomitant]
  5. DIART (AZOSEMIDE) [Concomitant]
  6. MAGLAX (MAGNESIUM OXIDE) [Concomitant]

REACTIONS (2)
  - SHOCK [None]
  - SYNCOPE [None]
